FAERS Safety Report 8950840 (Version 1)
Quarter: 2012Q4

REPORT INFORMATION
  Report Type: Spontaneous
  Country: US (occurrence: None)
  Receive Date: 20121204
  Receipt Date: 20121204
  Transmission Date: 20130627
  Serious: Yes (Hospitalization)
  Sender: FDA-Public Use
  Company Number: None

PATIENT
  Age: 86 Year
  Sex: Male

DRUGS (11)
  1. COUMADIN [Suspect]
  2. SYNTHROID [Suspect]
  3. ZYTIGA [Concomitant]
  4. PREDNISONE [Concomitant]
  5. CELEXA [Concomitant]
  6. BACTRIM [Concomitant]
  7. NITROFURATOIN [Concomitant]
  8. OMEPRAZOLE [Concomitant]
  9. COUMADIN [Concomitant]
  10. TRIAMTERENE [Concomitant]
  11. METOPROLOL [Concomitant]

REACTIONS (1)
  - Haemorrhage [None]
